FAERS Safety Report 10464310 (Version 3)
Quarter: 2015Q4

REPORT INFORMATION
  Report Type: Spontaneous
  Country: JP (occurrence: JP)
  Receive Date: 20140919
  Receipt Date: 20151030
  Transmission Date: 20160304
  Serious: Yes (Hospitalization)
  Sender: FDA-Public Use
  Company Number: JP-SA-2014SA125122

PATIENT
  Age: 66 Year
  Sex: Male
  Weight: 55.9 kg

DRUGS (19)
  1. DIOVAN [Concomitant]
     Active Substance: VALSARTAN
     Dates: start: 20140923
  2. LASIX [Suspect]
     Active Substance: FUROSEMIDE
     Indication: CARDIAC FAILURE
     Route: 048
     Dates: start: 20130717, end: 20140713
  3. ARTIST [Concomitant]
     Active Substance: CARVEDILOL
     Dates: start: 20101218
  4. SEIBULE [Concomitant]
     Active Substance: MIGLITOL
     Dates: start: 20140911
  5. ZYLORIC [Concomitant]
     Active Substance: ALLOPURINOL
     Dates: start: 20130626, end: 20140717
  6. PIMOBENDAN [Concomitant]
     Active Substance: PIMOBENDAN
     Dates: start: 20110909
  7. DIOVAN [Concomitant]
     Active Substance: VALSARTAN
     Dates: start: 20140726, end: 20140814
  8. DIOVAN [Concomitant]
     Active Substance: VALSARTAN
     Dates: start: 20140815
  9. SEIBULE [Concomitant]
     Active Substance: MIGLITOL
     Dates: start: 20140227, end: 20140805
  10. TAKEPRON [Concomitant]
     Active Substance: LANSOPRAZOLE
     Dates: start: 20120813
  11. NAPAGELN [Concomitant]
     Dates: start: 20130108
  12. AMLODIN [Concomitant]
     Active Substance: AMLODIPINE BESYLATE
     Indication: HYPERTENSION
     Dates: start: 20140905
  13. FOSRENOL [Concomitant]
     Active Substance: LANTHANUM CARBONATE
     Dates: start: 20140318, end: 20140815
  14. TENELIA [Concomitant]
     Active Substance: CITALOPRAM HYDROBROMIDE
     Dates: start: 20140227
  15. LASIX [Suspect]
     Active Substance: FUROSEMIDE
     Indication: CARDIAC FAILURE
     Route: 048
     Dates: start: 20140923
  16. AMLODIN [Concomitant]
     Active Substance: AMLODIPINE BESYLATE
     Indication: HYPERTENSION
     Dates: start: 20130511, end: 20140714
  17. DIOVAN [Concomitant]
     Active Substance: VALSARTAN
     Dates: start: 20130205, end: 20140713
  18. BAYASPIRIN [Concomitant]
     Active Substance: ASPIRIN
     Dates: start: 20130531
  19. LIPITOR [Concomitant]
     Active Substance: ATORVASTATIN CALCIUM
     Dates: start: 20131015

REACTIONS (4)
  - Nausea [Recovered/Resolved]
  - Dehydration [Recovered/Resolved]
  - Diarrhoea [Recovered/Resolved]
  - Protein-losing gastroenteropathy [Recovered/Resolved]

NARRATIVE: CASE EVENT DATE: 20140713
